FAERS Safety Report 8205187-0 (Version None)
Quarter: 2012Q1

REPORT INFORMATION
  Report Type: 
  Country: None (occurrence: None)
  Receive Date: 20120309
  Receipt Date: 20120228
  Transmission Date: 20120608
  Serious: Yes (Other)
  Sender: FDA-Public Use
  Company Number: TPA2011A05412

PATIENT
  Age: 63 Year
  Sex: Male
  Weight: 136.0791 kg

DRUGS (10)
  1. FLOMAX [Concomitant]
  2. AVODART [Concomitant]
  3. LEVSIN SL (HYOSCYAMINE SULFATE) [Concomitant]
  4. ACTOS [Suspect]
     Indication: DIABETES MELLITUS
     Dosage: 15 MG, 1 IN 1 D, PER ORAL, 45 MG, 1 IN 1 D, PER ORAL
     Route: 048
     Dates: end: 20110830
  5. ACTOS [Suspect]
     Indication: DIABETES MELLITUS
     Dosage: 15 MG, 1 IN 1 D, PER ORAL, 45 MG, 1 IN 1 D, PER ORAL
     Route: 048
     Dates: start: 20070720
  6. PROCARDIA XL [Concomitant]
  7. COREG CR (CARVEDILOL) [Concomitant]
  8. LOVASTATIN [Concomitant]
  9. GLUCOTROL XL [Concomitant]
  10. URIMAR-T (METHYLTHIONINIUM CHLORIDE, METHENAMINE, PHENYL SALICYLATE, H [Concomitant]

REACTIONS (11)
  - SINUSITIS [None]
  - OROPHARYNGEAL PAIN [None]
  - ADENOMA BENIGN [None]
  - MYALGIA [None]
  - BENIGN PROSTATIC HYPERPLASIA [None]
  - PROSTATIC OBSTRUCTION [None]
  - HEADACHE [None]
  - SLUGGISHNESS [None]
  - MUSCLE SPASMS [None]
  - BLADDER TRANSITIONAL CELL CARCINOMA [None]
  - CYSTITIS NONINFECTIVE [None]
